FAERS Safety Report 11577349 (Version 2)
Quarter: 2015Q4

REPORT INFORMATION
  Report Type: Spontaneous
  Country: US (occurrence: US)
  Receive Date: 20150930
  Receipt Date: 20151002
  Transmission Date: 20160304
  Serious: No
  Sender: FDA-Public Use
  Company Number: US-009507513-1509USA014448

PATIENT
  Age: 20 Year
  Sex: Female
  Weight: 68.27 kg

DRUGS (1)
  1. IMPLANON [Suspect]
     Active Substance: ETONOGESTREL
     Indication: CONTRACEPTION
     Dosage: DOSE/FREQUENCY: 3 YEAR PRODUCT
     Route: 059
     Dates: start: 20121217

REACTIONS (3)
  - Nausea [Unknown]
  - Weight increased [Unknown]
  - Implant site pain [Unknown]

NARRATIVE: CASE EVENT DATE: 201212
